FAERS Safety Report 4702353-3 (Version None)
Quarter: 2005Q2

REPORT INFORMATION
  Report Type: 
  Country: None (occurrence: None)
  Receive Date: 20050629
  Receipt Date: 20040706
  Transmission Date: 20051028
  Serious: No
  Sender: FDA-Public Use
  Company Number: US-GLAXOSMITHKLINE-A0517777A

PATIENT

DRUGS (1)
  1. VENTOLIN [Suspect]
     Indication: ILL-DEFINED DISORDER
     Route: 055

REACTIONS (1)
  - ADVERSE EVENT [None]
